FAERS Safety Report 8784699 (Version 3)
Quarter: 2013Q4

REPORT INFORMATION
  Report Type: Spontaneous
  Country: CA (occurrence: CA)
  Receive Date: 20120914
  Receipt Date: 20131213
  Transmission Date: 20140711
  Serious: Yes (Death)
  Sender: FDA-Public Use
  Company Number: CA-PFIZER INC-2012223957

PATIENT
  Age: 50 Year
  Sex: Male

DRUGS (2)
  1. XALKORI [Suspect]
     Indication: NON-SMALL CELL LUNG CANCER
     Dosage: 200 MG, UNK
     Route: 048
  2. XALKORI [Suspect]
     Dosage: UNK, CYCLIC (CYCLE 6)
     Dates: start: 20120829

REACTIONS (3)
  - Death [Fatal]
  - Disease progression [Unknown]
  - Non-small cell lung cancer [Unknown]
